APPROVED DRUG PRODUCT: QTERNMET XR
Active Ingredient: DAPAGLIFLOZIN; METFORMIN HYDROCHLORIDE; SAXAGLIPTIN HYDROCHLORIDE
Strength: 2.5MG;1GM;EQ 2.5MG BASE
Dosage Form/Route: TABLET, EXTENDED RELEASE;ORAL
Application: N210874 | Product #001
Applicant: ASTRAZENECA AB
Approved: May 2, 2019 | RLD: Yes | RS: No | Type: DISCN

PATENTS:
Patent 6515117 | Expires: Oct 4, 2025
Patent 8501698 | Expires: Jun 20, 2027
Patent 8716251 | Expires: Mar 21, 2028
Patent 7919598 | Expires: Dec 16, 2029
Patent 9616028 | Expires: Nov 12, 2030
Patent 8501698*PED | Expires: Dec 20, 2027
Patent 7919598*PED | Expires: Jun 16, 2030
Patent 6515117*PED | Expires: Apr 4, 2026
Patent 8716251*PED | Expires: Sep 21, 2028
Patent 9616028*PED | Expires: May 12, 2031